FAERS Safety Report 21246284 (Version 1)
Quarter: 2022Q3

REPORT INFORMATION
  Report Type: Report from Study
  Country: US (occurrence: US)
  Receive Date: 20220824
  Receipt Date: 20220824
  Transmission Date: 20221027
  Serious: Yes (Hospitalization)
  Sender: FDA-Public Use
  Company Number: US-BIOGEN-2022BI01149014

PATIENT
  Sex: Female

DRUGS (1)
  1. VUMERITY [Suspect]
     Active Substance: DIROXIMEL FUMARATE
     Indication: Multiple sclerosis
     Route: 050
     Dates: start: 20210222

REACTIONS (7)
  - Fatigue [Unknown]
  - Dyspnoea [Unknown]
  - Bundle branch block left [Unknown]
  - Myocardial infarction [Unknown]
  - Stress [Not Recovered/Not Resolved]
  - Weight increased [Unknown]
  - Viral infection [Unknown]
